FAERS Safety Report 25475874 (Version 1)
Quarter: 2025Q2

REPORT INFORMATION
  Report Type: Spontaneous
  Country: GB (occurrence: GB)
  Receive Date: 20250625
  Receipt Date: 20250625
  Transmission Date: 20250717
  Serious: Yes (Other)
  Sender: TORRENT PHARMA INC.
  Company Number: None

PATIENT
  Age: 71 Year
  Sex: Male

DRUGS (6)
  1. APIXABAN [Suspect]
     Active Substance: APIXABAN
     Indication: Atrial fibrillation
     Dosage: 5MG TWICE A DAY
     Route: 065
     Dates: start: 20241001
  2. ATORVASTATIN [Concomitant]
     Active Substance: ATORVASTATIN
     Indication: Heart disease congenital
     Route: 065
     Dates: start: 20091001
  3. BISOPROLOL [Concomitant]
     Active Substance: BISOPROLOL
     Indication: Cardiomegaly
     Route: 065
     Dates: start: 20241001
  4. ENTRESTO [Concomitant]
     Active Substance: SACUBITRIL\VALSARTAN
     Indication: Product used for unknown indication
     Route: 065
     Dates: start: 20241001
  5. EPLERENONE [Concomitant]
     Active Substance: EPLERENONE
     Indication: Cardiac failure
     Route: 065
     Dates: start: 20241001
  6. EZETIMIBE [Concomitant]
     Active Substance: EZETIMIBE
     Indication: Cardiomegaly
     Route: 065
     Dates: start: 20091001

REACTIONS (3)
  - Eye injury [Not Recovered/Not Resolved]
  - Vitreous floaters [Unknown]
  - Eye haemorrhage [Unknown]

NARRATIVE: CASE EVENT DATE: 20250515
